FAERS Safety Report 8313157-7 (Version None)
Quarter: 2012Q2

REPORT INFORMATION
  Report Type: 
  Country: None (occurrence: None)
  Receive Date: 20120426
  Receipt Date: 20120423
  Transmission Date: 20120825
  Serious: No
  Sender: FDA-Public Use
  Company Number: US-PFIZER INC-2012101142

PATIENT
  Sex: Female
  Weight: 111 kg

DRUGS (5)
  1. NEXIUM [Concomitant]
     Indication: GASTRITIS
     Dosage: 40 MG,DAILY
  2. OXYCODONE [Concomitant]
     Indication: ARTHRALGIA
     Dosage: UNK, AS NEEDED
  3. CLONIDINE [Concomitant]
     Dosage: 2 MG, DAILY
  4. HYDROCHLOROTHIAZIDE [Concomitant]
     Dosage: 75 MG, DAILY
  5. ARTHROTEC [Suspect]
     Indication: ARTHRITIS
     Dosage: 75 MG, 2X/DAY
     Route: 048
     Dates: end: 20120401

REACTIONS (1)
  - MALAISE [None]
